FAERS Safety Report 10415263 (Version 1)
Quarter: 2014Q2

REPORT INFORMATION
  Report Type: Spontaneous
  Country: US (occurrence: None)
  Receive Date: 20140604
  Receipt Date: 20140604
  Transmission Date: 20141212
  Serious: No
  Sender: FDA-Public Use
  Company Number: 163-POMAL-14022385

PATIENT
  Age: 57 Year
  Sex: Male
  Weight: 72.58 kg

DRUGS (15)
  1. POMALYST (POMALIDOMIDE) (4 MILLIGRAM, CAPSULES) [Suspect]
     Indication: PLASMA CELL MYELOMA
     Dosage: 21 IN 21 D
     Route: 048
     Dates: start: 20130403
  2. HYOSCYAMINE [Concomitant]
  3. MULTIVITAMINS [Concomitant]
  4. ASPIRINE (ACETYLSALICYLIC ACID) [Concomitant]
  5. ADVIL (IBUPROFEN) [Concomitant]
  6. CALCIUM CITRATE (CALCIUM CITRATE) [Concomitant]
  7. PAMIDRONATE (PAMIDRONATE DISODIUM) [Concomitant]
  8. FLUCONAZOLE [Concomitant]
  9. CITALOPRAM [Concomitant]
  10. ZOMIG (ZOLMITRIPTAN) [Concomitant]
  11. AFLUZOSIN (FLUCONAZOLE) [Concomitant]
  12. ACYCLOVIR (ACICLOVIR) [Concomitant]
  13. ALPRAZOLAM [Concomitant]
  14. OMEPRAZOLE [Concomitant]
  15. CARISOPRODOL [Concomitant]

REACTIONS (1)
  - Cystitis [None]
